FAERS Safety Report 19896870 (Version 1)
Quarter: 2021Q3

REPORT INFORMATION
  Report Type: Spontaneous
  Country: DE (occurrence: DE)
  Receive Date: 20210930
  Receipt Date: 20210930
  Transmission Date: 20211014
  Serious: Yes (Hospitalization, Other)
  Sender: FDA-Public Use
  Company Number: DE-ABBVIE-21K-062-4096057-00

PATIENT
  Age: 19 Year
  Sex: Female

DRUGS (12)
  1. LEVOMEPROMAZINE MALEATE [Suspect]
     Active Substance: LEVOMEPROMAZINE MALEATE
     Route: 048
     Dates: start: 20170908
  2. FAUSTAN [Concomitant]
     Active Substance: DIAZEPAM
     Indication: PRODUCT USED FOR UNKNOWN INDICATION
     Dates: start: 20170822
  3. ERGENYL [Suspect]
     Active Substance: VALPROIC ACID
     Route: 048
     Dates: start: 20170911, end: 20171010
  4. TAVOR [Concomitant]
     Indication: PRODUCT USED FOR UNKNOWN INDICATION
  5. ERGENYL [Suspect]
     Active Substance: VALPROIC ACID
     Indication: PRODUCT USED FOR UNKNOWN INDICATION
     Route: 048
     Dates: start: 20170814, end: 20170814
  6. ERGENYL [Suspect]
     Active Substance: VALPROIC ACID
     Route: 048
     Dates: start: 20170818, end: 20170823
  7. ERGENYL [Suspect]
     Active Substance: VALPROIC ACID
     Route: 048
     Dates: start: 20170829, end: 20170910
  8. ERGENYL [Suspect]
     Active Substance: VALPROIC ACID
     Route: 048
     Dates: start: 20170815, end: 20170817
  9. ERGENYL [Suspect]
     Active Substance: VALPROIC ACID
     Dosage: 1500?2400 MG
     Route: 048
     Dates: start: 20171011
  10. CHLORMADINONE ACETATE;ETHINYLESTRADIOL [Suspect]
     Active Substance: CHLORMADINONE ACETATE\ETHINYL ESTRADIOL
     Indication: PRODUCT USED FOR UNKNOWN INDICATION
     Dosage: TAKING FOR A LONG TIME
     Route: 065
  11. LEVOMEPROMAZINE MALEATE [Suspect]
     Active Substance: LEVOMEPROMAZINE MALEATE
     Indication: PRODUCT USED FOR UNKNOWN INDICATION
     Route: 048
     Dates: start: 20170824, end: 20170907
  12. ERGENYL [Suspect]
     Active Substance: VALPROIC ACID
     Route: 048
     Dates: start: 20170824, end: 20170828

REACTIONS (1)
  - Cerebral venous sinus thrombosis [Recovering/Resolving]

NARRATIVE: CASE EVENT DATE: 20171011
